FAERS Safety Report 12094658 (Version 1)
Quarter: 2016Q1

REPORT INFORMATION
  Report Type: Spontaneous
  Country: US (occurrence: US)
  Receive Date: 20160219
  Receipt Date: 20160219
  Transmission Date: 20160526
  Serious: No
  Sender: FDA-Public Use
  Company Number: US-BRISTOL-MYERS SQUIBB COMPANY-BMS-2016-012536

PATIENT
  Sex: Female

DRUGS (1)
  1. ABILIFY [Suspect]
     Active Substance: ARIPIPRAZOLE
     Indication: SCHIZOPHRENIA
     Dosage: 2.5 UNK, QD
     Route: 065

REACTIONS (4)
  - Eye swelling [Unknown]
  - Off label use [Unknown]
  - Wrong technique in product usage process [Unknown]
  - Dark circles under eyes [Unknown]
